FAERS Safety Report 13844951 (Version 1)
Quarter: 2017Q3

REPORT INFORMATION
  Report Type: Other
  Country: GB (occurrence: GB)
  Receive Date: 20170808
  Receipt Date: 20170808
  Transmission Date: 20171127
  Serious: Yes (Hospitalization)
  Sender: FDA-Public Use
  Company Number: GB-RARE DISEASE THERAPEUTICS, INC.-2024336

PATIENT
  Age: 30 Year
  Sex: Male

DRUGS (1)
  1. PURIXAN [Suspect]
     Active Substance: MERCAPTOPURINE
     Indication: COLITIS ULCERATIVE
     Route: 048

REACTIONS (3)
  - Furuncle [Not Recovered/Not Resolved]
  - Off label use [Unknown]
  - Acne [Not Recovered/Not Resolved]
